FAERS Safety Report 12366358 (Version 2)
Quarter: 2016Q2

REPORT INFORMATION
  Report Type: Spontaneous
  Country: US (occurrence: US)
  Receive Date: 20160513
  Receipt Date: 20160623
  Transmission Date: 20160815
  Serious: No
  Sender: FDA-Public Use
  Company Number: US-LEO PHARMA-241764

PATIENT
  Age: 51 Year
  Sex: Female

DRUGS (1)
  1. PICATO [Suspect]
     Active Substance: INGENOL MEBUTATE
     Indication: PRECANCEROUS SKIN LESION
     Dosage: APPLIED 3 TUBES PER NIGHT
     Route: 061
     Dates: start: 20160429, end: 20160429

REACTIONS (12)
  - Application site dryness [Recovered/Resolved]
  - Application site vesicles [Recovered/Resolved]
  - Medication error [Recovered/Resolved]
  - Disease recurrence [Not Recovered/Not Resolved]
  - Application site pain [Recovered/Resolved]
  - Application site swelling [Recovered/Resolved]
  - Incorrect drug administration duration [Recovered/Resolved]
  - Wrong technique in product usage process [Recovered/Resolved]
  - Application site discomfort [Recovered/Resolved]
  - Application site exfoliation [Recovered/Resolved]
  - Application site erythema [Recovered/Resolved]
  - Drug administration error [Recovered/Resolved]

NARRATIVE: CASE EVENT DATE: 20160429
